FAERS Safety Report 10181401 (Version 1)
Quarter: 2014Q2

REPORT INFORMATION
  Report Type: Spontaneous
  Country: ES (occurrence: ES)
  Receive Date: 20140519
  Receipt Date: 20140519
  Transmission Date: 20141212
  Serious: Yes (Hospitalization)
  Sender: FDA-Public Use
  Company Number: PHHY2014ES058657

PATIENT
  Age: 21 Year
  Sex: Male

DRUGS (4)
  1. RIMSTAR [Suspect]
     Indication: EXTRAPULMONARY TUBERCULOSIS
     Dosage: 5 DF, QD
     Route: 048
     Dates: start: 20130719, end: 20130821
  2. FEXOFENADINE [Concomitant]
     Indication: RASH
     Dosage: 120 MG, QD
     Route: 048
     Dates: start: 20130722, end: 20130819
  3. OMEPRAZOL [Concomitant]
     Indication: GASTRITIS PROPHYLAXIS
     Dosage: 20 MG, QD
     Route: 048
     Dates: start: 20130809
  4. PARACETAMOL [Concomitant]
     Indication: PYREXIA
     Dosage: 650 MG, TID
     Route: 048
     Dates: start: 20130719

REACTIONS (1)
  - Drug reaction with eosinophilia and systemic symptoms [Recovered/Resolved]
